FAERS Safety Report 9058324 (Version 1)
Quarter: 2012Q4

REPORT INFORMATION
  Report Type: 
  Country: US (occurrence: US)
  Receive Date: 20121002
  Receipt Date: 20121002
  Transmission Date: 20130627
  Serious: Yes (Congenital Anomaly, Other)
  Sender: FDA-Public Use
  Company Number: US-RB-045328-12

PATIENT
  Age: 0 None
  Sex: Female
  Weight: 2.36 kg

DRUGS (2)
  1. SUBOXONE [Suspect]
     Indication: DRUG DEPENDENCE
     Dosage: Dosing details unknown
     Route: 064
     Dates: start: 2010, end: 201004
  2. METHADONE [Suspect]
     Indication: DRUG DEPENDENCE
     Dosage: Dosing details unknown
     Route: 064
     Dates: start: 201004, end: 20100830

REACTIONS (8)
  - Hip dysplasia [Recovered/Resolved]
  - Drug withdrawal syndrome neonatal [Recovered/Resolved]
  - Muscle rigidity [Recovered/Resolved]
  - Amblyopia [Not Recovered/Not Resolved]
  - Liver disorder [Unknown]
  - Dermatitis diaper [Not Recovered/Not Resolved]
  - Rash [Recovered/Resolved]
  - Foetal exposure during pregnancy [Recovered/Resolved]
